FAERS Safety Report 10249063 (Version 1)
Quarter: 2014Q2

REPORT INFORMATION
  Report Type: Spontaneous
  Country: US (occurrence: None)
  Receive Date: 20140619
  Receipt Date: 20140619
  Transmission Date: 20141212
  Serious: No
  Sender: FDA-Public Use
  Company Number: None

PATIENT
  Age: 71 Year
  Sex: Male
  Weight: 153.32 kg

DRUGS (1)
  1. CLINDAMYCIN [Suspect]
     Indication: SKIN INFECTION
     Dosage: 1 CAPSULE FOUR TIMES DAILY
     Dates: start: 20140612, end: 20140617

REACTIONS (2)
  - Dyspepsia [None]
  - Drug ineffective [None]
